FAERS Safety Report 10260482 (Version 2)
Quarter: 2014Q3

REPORT INFORMATION
  Report Type: Spontaneous
  Country: IT (occurrence: IT)
  Receive Date: 20140626
  Receipt Date: 20140708
  Transmission Date: 20150326
  Serious: Yes (Hospitalization)
  Sender: FDA-Public Use
  Company Number: IT-ROCHE-1423447

PATIENT
  Age: 75 Year
  Sex: Male

DRUGS (1)
  1. ALTEPLASE [Suspect]
     Active Substance: ALTEPLASE
     Indication: ISCHAEMIC STROKE
     Dosage: 1 IN 1 ONCE
     Route: 042

REACTIONS (4)
  - Extradural haematoma [Recovered/Resolved]
  - Spinal cord compression [Recovered/Resolved]
  - Paresis [Recovered/Resolved]
  - Neck pain [Recovered/Resolved]
